FAERS Safety Report 7413744-4 (Version None)
Quarter: 2011Q2

REPORT INFORMATION
  Report Type: 
  Country: None (occurrence: None)
  Receive Date: 20110413
  Receipt Date: 20110408
  Transmission Date: 20111010
  Serious: Yes (Life-Threatening, Other)
  Sender: FDA-Public Use
  Company Number: GB-PFIZER INC-2010140638

PATIENT
  Age: 22 Year
  Sex: Female
  Weight: 58 kg

DRUGS (1)
  1. DEPO-PROVERA [Suspect]
     Dosage: 150 MG,  EVERY 11-12 WEEKS
     Route: 030
     Dates: start: 20070101

REACTIONS (9)
  - CIRCULATORY COLLAPSE [None]
  - DYSPNOEA [None]
  - LOSS OF CONSCIOUSNESS [None]
  - PRURITUS [None]
  - HYPERSENSITIVITY [None]
  - SYNCOPE [None]
  - CHEST DISCOMFORT [None]
  - EYELID OEDEMA [None]
  - ERYTHEMA [None]
